FAERS Safety Report 4503858-0 (Version None)
Quarter: 2004Q4

REPORT INFORMATION
  Report Type: 
  Country: None (occurrence: None)
  Receive Date: 20041115
  Receipt Date: 20041102
  Transmission Date: 20050328
  Serious: Yes (Other)
  Sender: FDA-Public Use
  Company Number: 2004087361

PATIENT
  Age: 41 Year
  Sex: Female

DRUGS (1)
  1. GLADEM (SERTRALINE) [Suspect]
     Indication: MIGRAINE
     Dosage: (1 IN 1 D), ORAL
     Route: 048

REACTIONS (4)
  - ABDOMINAL PAIN UPPER [None]
  - APPENDICITIS [None]
  - C-REACTIVE PROTEIN INCREASED [None]
  - LEUKOCYTOSIS [None]
